FAERS Safety Report 18588474 (Version 1)
Quarter: 2020Q4

REPORT INFORMATION
  Report Type: Spontaneous
  Country: US (occurrence: MX)
  Receive Date: 20201207
  Receipt Date: 20201207
  Transmission Date: 20210114
  Serious: Yes (Other)
  Sender: FDA-Public Use
  Company Number: MX-BIOMARINAP-MX-2020-133728

PATIENT
  Age: 12 Year
  Sex: Female

DRUGS (1)
  1. ALDURAZYME [Suspect]
     Active Substance: LARONIDASE
     Indication: MUCOPOLYSACCHARIDOSIS I
     Dosage: UNK
     Route: 042
     Dates: start: 2011

REACTIONS (6)
  - Arthropathy [Unknown]
  - Product dose omission issue [Unknown]
  - Aphonia [Unknown]
  - Fatigue [Unknown]
  - Respiratory disorder [Unknown]
  - Corneal opacity [Unknown]
